FAERS Safety Report 14351725 (Version 1)
Quarter: 2018Q1

REPORT INFORMATION
  Report Type: Spontaneous
  Country: US (occurrence: US)
  Receive Date: 20180104
  Receipt Date: 20180104
  Transmission Date: 20180509
  Serious: No
  Sender: FDA-Public Use
  Company Number: US-BAYER-2017-242217

PATIENT
  Age: 62 Year
  Sex: Male
  Weight: 91 kg

DRUGS (3)
  1. ALEVE [Suspect]
     Active Substance: NAPROXEN SODIUM
     Indication: PAIN
     Dosage: 1 DF, UNK
     Route: 048
  2. ALEVE [Suspect]
     Active Substance: NAPROXEN SODIUM
     Indication: PAIN
     Dosage: 1 DF, UNK
     Route: 048
  3. BAYER LOW DOSE [Suspect]
     Active Substance: ASPIRIN
     Indication: PAIN
     Dosage: 1 DF, QD
     Route: 048

REACTIONS (5)
  - Product use in unapproved indication [Unknown]
  - Incorrect drug administration duration [Unknown]
  - Hypocoagulable state [Unknown]
  - Product use issue [Unknown]
  - Blood disorder [Recovered/Resolved]

NARRATIVE: CASE EVENT DATE: 201710
